FAERS Safety Report 6071133-1 (Version None)
Quarter: 2009Q1

REPORT INFORMATION
  Report Type: 
  Country: None (occurrence: None)
  Receive Date: 20090209
  Receipt Date: 20090204
  Transmission Date: 20090719
  Serious: Yes (Hospitalization)
  Sender: FDA-Public Use
  Company Number: FR-RB-009214-09

PATIENT
  Age: 37 Year
  Sex: Male

DRUGS (2)
  1. SUBUTEX [Suspect]
     Indication: DRUG THERAPY
     Route: 042
  2. SUBUTEX [Suspect]
     Route: 058

REACTIONS (11)
  - EXCORIATION [None]
  - HOSPITALISATION [None]
  - INCORRECT ROUTE OF DRUG ADMINISTRATION [None]
  - INJURY [None]
  - LYMPHADENOPATHY [None]
  - LYMPHOEDEMA [None]
  - OEDEMA PERIPHERAL [None]
  - PARONYCHIA [None]
  - SKIN ULCER [None]
  - SUBSTANCE ABUSE [None]
  - SYSTEMIC INFLAMMATORY RESPONSE SYNDROME [None]
